FAERS Safety Report 9319253 (Version 1)
Quarter: 2013Q2

REPORT INFORMATION
  Report Type: Spontaneous
  Country: IT (occurrence: IT)
  Receive Date: 20130530
  Receipt Date: 20130530
  Transmission Date: 20140414
  Serious: Yes (Death)
  Sender: FDA-Public Use
  Company Number: IT-BRISTOL-MYERS SQUIBB COMPANY-18956128

PATIENT
  Age: 45 Year
  Sex: Female

DRUGS (2)
  1. YERVOY [Suspect]
  2. VEMURAFENIB [Suspect]

REACTIONS (1)
  - Death [Fatal]
